FAERS Safety Report 5496848-5 (Version None)
Quarter: 2007Q4

REPORT INFORMATION
  Report Type: 
  Country: None (occurrence: None)
  Receive Date: 20071025
  Receipt Date: 20070827
  Transmission Date: 20080405
  Serious: No
  Sender: FDA-Public Use
  Company Number: A0676649A

PATIENT
  Age: 81 Year
  Sex: Female

DRUGS (6)
  1. ADVAIR DISKUS 100/50 [Suspect]
     Indication: CHRONIC OBSTRUCTIVE PULMONARY DISEASE
     Dosage: 1PUFF TWICE PER DAY
     Route: 055
     Dates: start: 20060101
  2. COMBIVENT [Concomitant]
  3. DILTIAZEM CD [Concomitant]
  4. DIGITEK [Concomitant]
  5. WARFARIN SODIUM [Concomitant]
  6. ARMOUR [Concomitant]

REACTIONS (1)
  - POLLAKIURIA [None]
